FAERS Safety Report 23736538 (Version 3)
Quarter: 2024Q3

REPORT INFORMATION
  Report Type: Report from Study
  Country: CA (occurrence: None)
  Receive Date: 20240412
  Receipt Date: 20240906
  Transmission Date: 20241017
  Serious: Yes (Hospitalization)
  Sender: ASTRAZENECA
  Company Number: 2024A082055

PATIENT
  Sex: Female

DRUGS (7)
  1. FASENRA [Suspect]
     Active Substance: BENRALIZUMAB
     Indication: Asthma
     Dosage: 30.0MG UNKNOWN
     Route: 058
     Dates: start: 20200122
  2. FASENRA [Suspect]
     Active Substance: BENRALIZUMAB
     Indication: Asthma
     Dosage: 30.0MG UNKNOWN
     Route: 058
     Dates: start: 20200122
  3. PERINDOPRIL [Concomitant]
     Active Substance: PERINDOPRIL
  4. AMLODIPINE [Concomitant]
     Active Substance: AMLODIPINE BESYLATE
  5. ALBUTEROL [Concomitant]
     Active Substance: ALBUTEROL
     Dosage: 100.0UG AS REQUIRED
  6. SPIRIVA [Concomitant]
     Active Substance: TIOTROPIUM BROMIDE MONOHYDRATE
     Dosage: 2.5 MCG 2 PUFFS OD
  7. SYMBICORT [Concomitant]
     Active Substance: BUDESONIDE\FORMOTEROL FUMARATE DIHYDRATE
     Dosage: 200 MCG 1 PUFF BID

REACTIONS (2)
  - Rib fracture [Unknown]
  - Blood pressure increased [Unknown]
